FAERS Safety Report 5412474-8 (Version None)
Quarter: 2007Q3

REPORT INFORMATION
  Report Type: 
  Country: None (occurrence: None)
  Receive Date: 20070809
  Receipt Date: 20070724
  Transmission Date: 20080115
  Serious: Yes (Death)
  Sender: FDA-Public Use
  Company Number: 134

PATIENT
  Sex: Male

DRUGS (1)
  1. FAZACLO 25 MG ODT AZUR PHARMA [Suspect]
     Dosage: 37.5 MG PO DAILY
     Route: 048
     Dates: start: 20061017, end: 20070715

REACTIONS (1)
  - LUNG NEOPLASM MALIGNANT [None]
